FAERS Safety Report 17850368 (Version 7)
Quarter: 2020Q4

REPORT INFORMATION
  Report Type: Spontaneous
  Country: US (occurrence: US)
  Receive Date: 20200602
  Receipt Date: 20201217
  Transmission Date: 20210113
  Serious: Yes (Hospitalization)
  Sender: FDA-Public Use
  Company Number: US-PFIZER INC-2020-07989

PATIENT
  Age: 64 Year
  Sex: Male

DRUGS (2)
  1. BRAFTOVI [Suspect]
     Active Substance: ENCORAFENIB
     Indication: MALIGNANT MELANOMA
     Dosage: 450 MG, 1X/DAY (75 MG, TAKE 6 CAPSULES ONCE DAILY)
     Route: 048
     Dates: start: 20190918, end: 202005
  2. MEKTOVI [Suspect]
     Active Substance: BINIMETINIB
     Indication: MALIGNANT MELANOMA
     Dosage: 45 MG, 2X/DAY (TAKE 3 TABLETS BY MOUTH EVERY 12)
     Route: 048
     Dates: start: 20190918, end: 202005

REACTIONS (5)
  - Wound [Unknown]
  - Myocardial infarction [Unknown]
  - Hypertension [Unknown]
  - Dyspnoea [Unknown]
  - Infection [Unknown]

NARRATIVE: CASE EVENT DATE: 20200517
